FAERS Safety Report 11840038 (Version 1)
Quarter: 2015Q4

REPORT INFORMATION
  Report Type: Other
  Country: BR (occurrence: BR)
  Receive Date: 20151216
  Receipt Date: 20151216
  Transmission Date: 20160305
  Serious: Yes (Hospitalization)
  Sender: FDA-Public Use
  Company Number: BR-ENDO PHARMACEUTICALS INC-2015-004855

PATIENT
  Age: 33 Year
  Sex: Male

DRUGS (3)
  1. CHLORTHALIDONE. [Suspect]
     Active Substance: CHLORTHALIDONE
     Indication: ACCIDENTAL EXPOSURE TO PRODUCT
     Route: 065
  2. NIMESULIDE [Suspect]
     Active Substance: NIMESULIDE
     Indication: ACCIDENTAL EXPOSURE TO PRODUCT
     Route: 065
  3. ALLOPURINOL TABLETS [Suspect]
     Active Substance: ALLOPURINOL
     Indication: ACCIDENTAL EXPOSURE TO PRODUCT
     Route: 065

REACTIONS (2)
  - Accidental exposure to product [Recovered/Resolved]
  - Drug reaction with eosinophilia and systemic symptoms [Unknown]
